FAERS Safety Report 11594389 (Version 3)
Quarter: 2015Q4

REPORT INFORMATION
  Report Type: Spontaneous
  Country: US (occurrence: US)
  Receive Date: 20151005
  Receipt Date: 20151103
  Transmission Date: 20160304
  Serious: No
  Sender: FDA-Public Use
  Company Number: US-PFIZER INC-2015327701

PATIENT
  Age: 63 Year
  Sex: Female
  Weight: 102 kg

DRUGS (8)
  1. CELECOXIB. [Suspect]
     Active Substance: CELECOXIB
     Indication: ARTHRALGIA
     Dosage: 200 MG, 1X/DAY
     Route: 048
     Dates: start: 201503, end: 201509
  2. METFORMIN [Concomitant]
     Active Substance: METFORMIN HYDROCHLORIDE
     Indication: DIABETES MELLITUS
     Dosage: 2500 MG, DAILY (500 MG MORNING/1000 MG AT LUNCH/ 1000 MG AT DINNER)
  3. ALTACE [Concomitant]
     Active Substance: RAMIPRIL
     Indication: BLOOD PRESSURE MEASUREMENT
     Dosage: 5 MG, 1X/DAY
  4. CELECOXIB. [Suspect]
     Active Substance: CELECOXIB
     Indication: OSTEOARTHRITIS
  5. CELEBREX [Concomitant]
     Active Substance: CELECOXIB
     Indication: OSTEOARTHRITIS
  6. ATIVAN [Concomitant]
     Active Substance: LORAZEPAM
     Indication: ANXIETY
     Dosage: 1 MG, AS NEEDED
     Route: 048
  7. CELEBREX [Concomitant]
     Active Substance: CELECOXIB
     Indication: ARTHRITIS
     Dosage: 200 MG, 1X/DAY
     Route: 048
     Dates: start: 20150924
  8. LEVEMIR [Concomitant]
     Active Substance: INSULIN DETEMIR
     Dosage: 70 MG, DAILY (50 UNITS AT DAY/ 20 UNITS AT NIGHT)

REACTIONS (6)
  - Arthralgia [Recovering/Resolving]
  - Mobility decreased [Recovering/Resolving]
  - Drug ineffective [Unknown]
  - Back pain [Recovering/Resolving]
  - Condition aggravated [Recovering/Resolving]
  - C-reactive protein increased [Unknown]

NARRATIVE: CASE EVENT DATE: 201503
